FAERS Safety Report 25123828 (Version 1)
Quarter: 2025Q1

REPORT INFORMATION
  Report Type: Spontaneous
  Country: US (occurrence: US)
  Receive Date: 20250326
  Receipt Date: 20250326
  Transmission Date: 20250408
  Serious: Yes (Hospitalization)
  Sender: MYLAN
  Company Number: US-MYLANLABS-2025M1025529

PATIENT
  Age: 47 Year
  Sex: Male

DRUGS (8)
  1. RIFAMPIN [Suspect]
     Active Substance: RIFAMPIN
     Indication: Lymph node tuberculosis
  2. METHYLPREDNISOLONE [Suspect]
     Active Substance: METHYLPREDNISOLONE
     Indication: Immune reconstitution inflammatory syndrome associated tuberculosis
     Dosage: 80 MILLIGRAM, Q8H
  3. ISONIAZID [Suspect]
     Active Substance: ISONIAZID
     Indication: Lymph node tuberculosis
  4. PYRAZINAMIDE [Suspect]
     Active Substance: PYRAZINAMIDE
     Indication: Lymph node tuberculosis
  5. ETHAMBUTOL [Suspect]
     Active Substance: ETHAMBUTOL HYDROCHLORIDE
     Indication: Lymph node tuberculosis
  6. PREDNISOLONE [Suspect]
     Active Substance: PREDNISOLONE
     Indication: Immune reconstitution inflammatory syndrome associated tuberculosis
     Dosage: 100 MILLIGRAM, BID
  7. METHOTREXATE [Concomitant]
     Active Substance: METHOTREXATE
     Indication: Rheumatoid arthritis
  8. PFIZER-BIONTECH COVID-19 VACCINE [Concomitant]
     Active Substance: TOZINAMERAN
     Indication: COVID-19 immunisation

REACTIONS (2)
  - Immune reconstitution inflammatory syndrome [Recovering/Resolving]
  - Off label use [Unknown]
